FAERS Safety Report 8243327-8 (Version None)
Quarter: 2012Q1

REPORT INFORMATION
  Report Type: 
  Country: None (occurrence: None)
  Receive Date: 20120329
  Receipt Date: 20120314
  Transmission Date: 20120608
  Serious: Yes (Hospitalization, Other)
  Sender: FDA-Public Use
  Company Number: US-ROCHE-1049030

PATIENT
  Sex: Male

DRUGS (27)
  1. MYCOPHENOLATE MOFETIL (CELLCEPT) [Suspect]
     Indication: PRODUCT USED FOR UNKNOWN INDICATION
  2. PREDNISONE TAB [Concomitant]
     Route: 048
     Dates: start: 20110513
  3. ALDACTONE [Concomitant]
  4. METRONIDAZOLE [Concomitant]
     Dosage: LAST DOSE ON 19/MAR/2012
     Route: 048
     Dates: start: 20120312
  5. LASIX [Concomitant]
  6. ZOLOFT [Concomitant]
     Route: 048
  7. PRAVACHOL [Concomitant]
     Route: 048
  8. COUMADIN [Concomitant]
     Route: 048
  9. PHENERGAN HCL [Concomitant]
  10. GUAIFENESIN W DEXTROMETHORPHAN [Concomitant]
     Route: 048
     Dates: start: 20120221
  11. ISOSORBIDE DINITRATE [Concomitant]
     Route: 048
     Dates: start: 20110727
  12. LOPID [Concomitant]
     Route: 048
     Dates: start: 20110707
  13. TACROLIMUS [Concomitant]
     Route: 048
     Dates: start: 20120313
  14. MYCOPHENOLATE MOFETIL (CELLCEPT) [Suspect]
     Route: 048
     Dates: start: 20120313
  15. ACETAMINOPHEN [Concomitant]
     Route: 048
     Dates: start: 20120118
  16. HYDRALAZINE HCL [Concomitant]
  17. FISH OIL [Concomitant]
  18. SIROLIMUS [Suspect]
     Indication: PRODUCT USED FOR UNKNOWN INDICATION
     Route: 048
  19. POTASSIUM CHLORIDE [Concomitant]
     Route: 048
     Dates: start: 20120222
  20. HUMULIN R [Concomitant]
     Route: 058
  21. LANCETS [Concomitant]
  22. SOTALOL HCL [Concomitant]
     Route: 048
  23. CLONIDINE [Concomitant]
     Route: 048
     Dates: start: 20111025
  24. CHLORTHALIDONE [Concomitant]
     Route: 048
     Dates: start: 20110728
  25. DILTIAZEM HCL [Concomitant]
     Route: 048
     Dates: start: 20110727
  26. CIPROFLOXACIN [Concomitant]
     Dosage: LAST DOSE ON 19/MAR/2012
     Route: 048
     Dates: start: 20120312
  27. LINEZOLID [Concomitant]
     Dosage: LAST DOSE ON 19/MAR/2012
     Route: 048
     Dates: start: 20120312

REACTIONS (3)
  - PNEUMONITIS [None]
  - HUMERUS FRACTURE [None]
  - RESPIRATORY FAILURE [None]
